FAERS Safety Report 6717089-7 (Version None)
Quarter: 2010Q2

REPORT INFORMATION
  Report Type: 
  Country: None (occurrence: None)
  Receive Date: 20100510
  Receipt Date: 20100430
  Transmission Date: 20101027
  Serious: Yes (Hospitalization)
  Sender: FDA-Public Use
  Company Number: ES-BRISTOL-MYERS SQUIBB COMPANY-15002462

PATIENT
  Age: 58 Year
  Sex: Male
  Weight: 79 kg

DRUGS (4)
  1. CETUXIMAB [Suspect]
     Indication: NON-SMALL CELL LUNG CANCER
     Dosage: FORMULATION:5MG/ML;RECENT INF:15FEB2010,INTERRUPTED ON 22FEB2010 RESTARTED ON 01MAR2010
     Route: 042
     Dates: start: 20100208
  2. CISPLATIN [Suspect]
     Indication: NON-SMALL CELL LUNG CANCER
     Dosage: ON DAY 1 OF 21 DAY CYCLE;INTERRUPTED ON 22FEB2010 RESTARTED ON 02MAR2010
     Route: 042
     Dates: start: 20100208
  3. GEMCITABINE HCL [Suspect]
     Indication: NON-SMALL CELL LUNG CANCER
     Dosage: ON DAY 1,8 OF 21DAY CYCLE;RECENT INF:15FEB2010;INTERRUPTED ON 22FEB2010 RESTARTED ON 02MAR2010
     Route: 042
     Dates: start: 20100208
  4. SINTROM [Concomitant]

REACTIONS (1)
  - EPISTAXIS [None]
